FAERS Safety Report 9401494 (Version 1)
Quarter: 2013Q3

REPORT INFORMATION
  Report Type: Spontaneous
  Country: US (occurrence: US)
  Receive Date: 20130716
  Receipt Date: 20130716
  Transmission Date: 20140515
  Serious: No
  Sender: FDA-Public Use
  Company Number: US-009507513-1307USA006675

PATIENT
  Age: 45 Year
  Sex: Male

DRUGS (1)
  1. LIPTRUZET [Suspect]
     Indication: HYPERCHOLESTEROLAEMIA
     Dosage: UNK
     Route: 048
     Dates: end: 2013

REACTIONS (1)
  - Erectile dysfunction [Recovered/Resolved]
